FAERS Safety Report 6945333-X (Version None)
Quarter: 2010Q3

REPORT INFORMATION
  Report Type: 
  Country: None (occurrence: None)
  Receive Date: 20100827
  Receipt Date: 20100816
  Transmission Date: 20110219
  Serious: Yes (Hospitalization)
  Sender: FDA-Public Use
  Company Number: MA-WATSON-2010-11371

PATIENT
  Age: 47 Year
  Sex: Female

DRUGS (1)
  1. TAMOXIFEN CITRATE [Suspect]
     Indication: BREAST CANCER
     Dosage: 20 MG, DAILY
     Dates: start: 20040101, end: 20090201

REACTIONS (1)
  - OVARIAN GRANULOSA-THECA CELL TUMOUR [None]
